FAERS Safety Report 21883133 (Version 1)
Quarter: 2023Q1

REPORT INFORMATION
  Report Type: Spontaneous
  Country: US (occurrence: None)
  Receive Date: 20230117
  Receipt Date: 20230117
  Transmission Date: 20230418
  Serious: No
  Sender: FDA-Public Use
  Company Number: None

PATIENT
  Age: 52 Year
  Sex: Female
  Weight: 111.13 kg

DRUGS (1)
  1. TALTZ [Suspect]
     Active Substance: IXEKIZUMAB
     Indication: Psoriasis
     Dosage: OTHER STRENGTH : 1 ML, 80MG/ML;?FREQUENCY : MONTHLY;?
     Route: 058
     Dates: start: 202205

REACTIONS (3)
  - Spinal operation [None]
  - Therapy interrupted [None]
  - Infection [None]
